FAERS Safety Report 9531166 (Version 1)
Quarter: 2013Q3

REPORT INFORMATION
  Report Type: Spontaneous
  Country: IT (occurrence: IT)
  Receive Date: 20130918
  Receipt Date: 20130918
  Transmission Date: 20140515
  Serious: Yes (Hospitalization)
  Sender: FDA-Public Use
  Company Number: IT-ASTRAZENECA-2013SE68372

PATIENT
  Age: 7827 Day
  Sex: Male

DRUGS (5)
  1. SEROQUEL [Suspect]
     Indication: INTENTIONAL OVERDOSE
     Route: 048
  2. SEROQUEL [Suspect]
     Indication: INTENTIONAL OVERDOSE
     Route: 048
     Dates: start: 20130605, end: 20130605
  3. XANAX [Suspect]
     Indication: INTENTIONAL OVERDOSE
     Route: 048
  4. XANAX [Suspect]
     Indication: INTENTIONAL OVERDOSE
     Route: 048
     Dates: start: 20130605, end: 20130605
  5. CAMPRAL [Concomitant]

REACTIONS (2)
  - Intentional overdose [Recovered/Resolved]
  - Sopor [Recovered/Resolved]
